FAERS Safety Report 17375249 (Version 4)
Quarter: 2020Q2

REPORT INFORMATION
  Report Type: Spontaneous
  Country: US (occurrence: US)
  Receive Date: 20200206
  Receipt Date: 20200603
  Transmission Date: 20200713
  Serious: No
  Sender: FDA-Public Use
  Company Number: US-CELGENEUS-USA-20200200475

PATIENT
  Sex: Female

DRUGS (2)
  1. REVLIMID [Suspect]
     Active Substance: LENALIDOMIDE
     Indication: MYELODYSPLASTIC SYNDROME
     Dosage: 2.5 MILLIGRAM
     Route: 048
     Dates: start: 201908
  2. REVLIMID [Suspect]
     Active Substance: LENALIDOMIDE
     Dosage: 5 MILLIGRAM
     Route: 048
     Dates: start: 201909

REACTIONS (4)
  - Dry skin [Not Recovered/Not Resolved]
  - Irritable bowel syndrome [Unknown]
  - Seasonal allergy [Not Recovered/Not Resolved]
  - Nasopharyngitis [Not Recovered/Not Resolved]
